FAERS Safety Report 12435724 (Version 1)
Quarter: 2016Q2

REPORT INFORMATION
  Report Type: Spontaneous
  Country: US (occurrence: US)
  Receive Date: 20160603
  Receipt Date: 20160603
  Transmission Date: 20160815
  Serious: No
  Sender: FDA-Public Use
  Company Number: US-ROCHE-1714910

PATIENT
  Sex: Male

DRUGS (3)
  1. XELODA [Suspect]
     Active Substance: CAPECITABINE
     Indication: NEOPLASM MALIGNANT
     Route: 048
  2. XELODA [Suspect]
     Active Substance: CAPECITABINE
     Route: 048
     Dates: start: 20140428
  3. XELODA [Suspect]
     Active Substance: CAPECITABINE
     Dosage: 3 TABLETS
     Route: 048
     Dates: start: 20151214

REACTIONS (5)
  - Skin discolouration [Unknown]
  - Sensory loss [Unknown]
  - Skin exfoliation [Unknown]
  - Lacrimation increased [Unknown]
  - Ill-defined disorder [Unknown]
